FAERS Safety Report 4467825-8 (Version None)
Quarter: 2004Q4

REPORT INFORMATION
  Report Type: 
  Country: None (occurrence: None)
  Receive Date: 20041007
  Receipt Date: 20040927
  Transmission Date: 20050328
  Serious: Yes (Hospitalization)
  Sender: FDA-Public Use
  Company Number: US-JNJFOC-20040706385

PATIENT
  Sex: Male

DRUGS (4)
  1. DURAGESIC [Suspect]
     Route: 062
  2. COUMADIN [Concomitant]
     Indication: ANTICOAGULANT THERAPY
     Dosage: 5 MG TO 7.5 MG
     Route: 049
  3. ZOLOFT [Concomitant]
     Route: 049
  4. NEXIUM [Concomitant]

REACTIONS (6)
  - ANGER [None]
  - BALANCE DISORDER [None]
  - CONFUSIONAL STATE [None]
  - FALL [None]
  - HEAD INJURY [None]
  - THINKING ABNORMAL [None]
